FAERS Safety Report 4399098-9 (Version None)
Quarter: 2004Q2

REPORT INFORMATION
  Report Type: 
  Country: None (occurrence: None)
  Receive Date: 20040621
  Receipt Date: 20031021
  Transmission Date: 20050107
  Serious: Yes (Death, Other)
  Sender: FDA-Public Use
  Company Number: 2013428

PATIENT
  Age: 39 Year
  Sex: Male
  Weight: 78.4 kg

DRUGS (6)
  1. OXYCODONE HCL [Suspect]
     Indication: PAIN
     Dosage: 40 MG, BID
  2. HYDROCODONE BITARTRATE [Suspect]
  3. VENLAFAXINE HCL [Suspect]
  4. MIRTAZAPINE [Suspect]
  5. ALPRAZOLAM [Suspect]
  6. CAFFEINE (CAFFEINE) [Suspect]

REACTIONS (10)
  - ACCIDENTAL OVERDOSE [None]
  - BODY TEMPERATURE DECREASED [None]
  - DISORIENTATION [None]
  - DRUG DEPENDENCE [None]
  - LETHARGY [None]
  - MEMORY IMPAIRMENT [None]
  - MULTIPLE DRUG OVERDOSE [None]
  - OVERDOSE [None]
  - PAIN [None]
  - SKIN DISCOLOURATION [None]
